FAERS Safety Report 8973823 (Version 1)
Quarter: 2012Q4

REPORT INFORMATION
  Report Type: 
  Country: US (occurrence: US)
  Receive Date: 20121218
  Receipt Date: 20121218
  Transmission Date: 20130627
  Serious: No
  Sender: FDA-Public Use
  Company Number: US-BRISTOL-MYERS SQUIBB COMPANY-16865990

PATIENT
  Sex: Female

DRUGS (2)
  1. ABILIFY TABS [Suspect]
     Dosage: 1DF = 1/2 of 5mg tab, now 1/4 of a tablet
  2. XANAX [Concomitant]

REACTIONS (4)
  - Somnolence [Not Recovered/Not Resolved]
  - Anxiety [Unknown]
  - Headache [Unknown]
  - Depersonalisation [Unknown]
